FAERS Safety Report 19548307 (Version 5)
Quarter: 2021Q3

REPORT INFORMATION
  Report Type: Spontaneous
  Country: US (occurrence: US)
  Receive Date: 20210715
  Receipt Date: 20210920
  Transmission Date: 20211014
  Serious: Yes (Hospitalization)
  Sender: FDA-Public Use
  Company Number: US-STRONGBRIDGE BIOPHARMA-2021-STR-000240

PATIENT
  Age: 55 Year
  Sex: Male

DRUGS (3)
  1. KEVEYIS [Suspect]
     Active Substance: DICHLORPHENAMIDE
     Indication: FAMILIAL PERIODIC PARALYSIS
     Dosage: 50 MG, BID
     Route: 048
     Dates: start: 20210625
  2. MODERNA COVID?19 VACCINE [Suspect]
     Active Substance: CX-024414
     Indication: COVID-19 IMMUNISATION
  3. KEVEYIS [Suspect]
     Active Substance: DICHLORPHENAMIDE
     Dosage: 100 MG, BID
     Route: 048

REACTIONS (14)
  - Condition aggravated [Unknown]
  - Chest pain [Recovering/Resolving]
  - Aphasia [Unknown]
  - Chest discomfort [Not Recovered/Not Resolved]
  - Oropharyngeal discomfort [Unknown]
  - Back pain [Unknown]
  - Memory impairment [Not Recovered/Not Resolved]
  - Dizziness [Unknown]
  - Bradyphrenia [Unknown]
  - Eructation [Unknown]
  - Fatigue [Not Recovered/Not Resolved]
  - Diarrhoea [Unknown]
  - Dizziness [Recovering/Resolving]
  - Restlessness [Recovering/Resolving]

NARRATIVE: CASE EVENT DATE: 202108
